FAERS Safety Report 5635646-6 (Version None)
Quarter: 2008Q1

REPORT INFORMATION
  Report Type: 
  Country: None (occurrence: None)
  Receive Date: 20080220
  Receipt Date: 20080205
  Transmission Date: 20080703
  Serious: Yes (Hospitalization)
  Sender: FDA-Public Use
  Company Number: B0508357A

PATIENT
  Age: 35 Year
  Sex: Female

DRUGS (3)
  1. VALACYCLOVIR [Suspect]
     Indication: HERPES ZOSTER
  2. PREDNISOLONE [Concomitant]
  3. CYCLOSPORINE [Concomitant]

REACTIONS (10)
  - ANXIETY [None]
  - ATAXIA [None]
  - COTARD'S SYNDROME [None]
  - CRYING [None]
  - DIALYSIS [None]
  - FATIGUE [None]
  - GAIT DISTURBANCE [None]
  - HAEMODIALYSIS [None]
  - HALLUCINATION, AUDITORY [None]
  - RESTLESSNESS [None]
